FAERS Safety Report 7248930-X (Version None)
Quarter: 2011Q1

REPORT INFORMATION
  Report Type: 
  Country: None (occurrence: None)
  Receive Date: 20110128
  Receipt Date: 20110120
  Transmission Date: 20110831
  Serious: Yes (Other)
  Sender: FDA-Public Use
  Company Number: CH-BRISTOL-MYERS SQUIBB COMPANY-13233051

PATIENT
  Age: 29 Year
  Sex: Female

DRUGS (17)
  1. LASIX [Suspect]
     Indication: HYPERTENSION
     Route: 048
  2. LASIX [Suspect]
     Indication: RENAL DISORDER
     Route: 048
  3. BELOC [Concomitant]
     Indication: RENAL DISORDER
     Route: 048
  4. BEMINAL FORTE W/VITAMIN C [Concomitant]
  5. APROVEL [Suspect]
     Indication: RENAL DISORDER
     Route: 048
  6. BELOC [Concomitant]
     Indication: HYPERTENSION
     Route: 048
  7. CALCIUM ACETATE [Concomitant]
     Indication: RENAL IMPAIRMENT
     Route: 048
  8. CALCITRIOL [Concomitant]
  9. DIALVIT [Concomitant]
     Route: 048
  10. ROCALTROL [Concomitant]
     Indication: RENAL IMPAIRMENT
     Route: 048
  11. RENAGEL [Concomitant]
     Indication: RENAL IMPAIRMENT
     Route: 048
  12. APROVEL [Suspect]
     Indication: HYPERTENSION
     Route: 048
  13. NEXIUM [Concomitant]
     Indication: GASTROINTESTINAL DISORDER
     Route: 048
  14. ASPIRIN [Concomitant]
     Indication: PROPHYLAXIS
     Route: 048
  15. SORTIS [Suspect]
     Indication: METABOLIC DISORDER
     Route: 048
  16. MIGRALEVE [Suspect]
     Indication: MIGRAINE
     Route: 048
  17. MIMPARA [Suspect]
     Indication: RENAL IMPAIRMENT
     Route: 048

REACTIONS (2)
  - DRUG EXPOSURE DURING PREGNANCY [None]
  - ABORTION INDUCED [None]
